FAERS Safety Report 9617379 (Version 1)
Quarter: 2013Q4

REPORT INFORMATION
  Report Type: Spontaneous
  Country: US (occurrence: US)
  Receive Date: 20131011
  Receipt Date: 20131011
  Transmission Date: 20140711
  Serious: Yes (Disabling, Other)
  Sender: FDA-Public Use
  Company Number: US-ASTRAZENECA-2013SE73474

PATIENT
  Age: 68 Year
  Sex: Female

DRUGS (3)
  1. ROPIVACAINE [Suspect]
     Route: 053
  2. MIDAZOLAM [Concomitant]
     Indication: PREMEDICATION
  3. FENTANYL [Concomitant]
     Indication: PREMEDICATION
     Dosage: 50 UG TOTAL
     Route: 042

REACTIONS (2)
  - Radial nerve palsy [Not Recovered/Not Resolved]
  - Brachial plexus injury [Recovering/Resolving]
